FAERS Safety Report 12093256 (Version 1)
Quarter: 2016Q1

REPORT INFORMATION
  Report Type: Spontaneous
  Country: US (occurrence: None)
  Receive Date: 20160218
  Receipt Date: 20160218
  Transmission Date: 20160526
  Serious: No
  Sender: FDA-Public Use
  Company Number: None

PATIENT

DRUGS (2)
  1. ZINC SULFATE ZINC [Suspect]
     Active Substance: ZINC SULFATE\ZINC SULFATE ANHYDROUS
  2. ZINC SULFATE ZINC [Suspect]
     Active Substance: ZINC SULFATE\ZINC SULFATE ANHYDROUS
     Route: 048

REACTIONS (2)
  - Intercepted product selection error [None]
  - Drug prescribing error [None]
